FAERS Safety Report 6661754-7 (Version None)
Quarter: 2010Q1

REPORT INFORMATION
  Report Type: 
  Country: None (occurrence: None)
  Receive Date: 20100331
  Receipt Date: 20090601
  Transmission Date: 20100710
  Serious: Yes (Other)
  Sender: FDA-Public Use
  Company Number: US-BRISTOL-MYERS SQUIBB COMPANY-14644611

PATIENT
  Sex: Male

DRUGS (3)
  1. ERBITUX [Suspect]
     Indication: COLORECTAL CANCER METASTATIC
     Dosage: RECEIVED 4CC
     Dates: start: 20090501, end: 20090501
  2. BENADRYL [Concomitant]
     Indication: PREMEDICATION
  3. STEROIDS [Concomitant]
     Indication: PREMEDICATION

REACTIONS (1)
  - ANAPHYLACTOID REACTION [None]
